FAERS Safety Report 6812301-8 (Version None)
Quarter: 2010Q3

REPORT INFORMATION
  Report Type: 
  Country: None (occurrence: None)
  Receive Date: 20100701
  Receipt Date: 20100622
  Transmission Date: 20110219
  Serious: Yes (Other)
  Sender: FDA-Public Use
  Company Number: US-PERRIGO-10US010729

PATIENT
  Sex: Male
  Weight: 78.005 kg

DRUGS (3)
  1. NICOTINE 4 MG MINT 873 [Suspect]
     Indication: SMOKING CESSATION THERAPY
     Dosage: 4 MG, PRN
     Route: 002
     Dates: start: 20100615, end: 20100616
  2. WELLBUTRIN XL [Concomitant]
     Indication: DEPRESSION
     Dosage: 300 MG, QD
     Route: 048
     Dates: start: 20091222
  3. WELLBUTRIN XL [Concomitant]
     Indication: ANXIETY

REACTIONS (7)
  - ACCIDENTAL OVERDOSE [None]
  - CHEST PAIN [None]
  - CONDITION AGGRAVATED [None]
  - DIZZINESS [None]
  - FEELING DRUNK [None]
  - HEART RATE INCREASED [None]
  - PALPITATIONS [None]
